FAERS Safety Report 10713114 (Version 1)
Quarter: 2015Q1

REPORT INFORMATION
  Report Type: Spontaneous
  Country: TW (occurrence: TW)
  Receive Date: 20150115
  Receipt Date: 20150115
  Transmission Date: 20150721
  Serious: Yes (Other)
  Sender: FDA-Public Use
  Company Number: TW-SHIONOGI, INC-2015000034

PATIENT
  Age: 59 Year
  Sex: Male
  Weight: 72 kg

DRUGS (3)
  1. FLUMARIN                           /00963302/ [Suspect]
     Active Substance: FLOMOXEF SODIUM
     Indication: ABDOMINAL ABSCESS
     Dosage: UNK
     Dates: start: 20140903
  2. FINIBAX [Suspect]
     Active Substance: DORIPENEM MONOHYDRATE
     Indication: ABDOMINAL ABSCESS
     Dosage: 1 G, QID
     Route: 042
     Dates: start: 20140827, end: 20140903
  3. ZYVOX [Suspect]
     Active Substance: LINEZOLID
     Dosage: UNK
     Dates: start: 20140904, end: 20140910

REACTIONS (1)
  - Dermatitis bullous [Recovering/Resolving]
